FAERS Safety Report 25153158 (Version 1)
Quarter: 2025Q2

REPORT INFORMATION
  Report Type: Spontaneous
  Country: NL (occurrence: NL)
  Receive Date: 20250403
  Receipt Date: 20250403
  Transmission Date: 20250717
  Serious: Yes (Other)
  Sender: AUROBINDO
  Company Number: NL-LRB-01045616

PATIENT
  Age: 8 Year
  Sex: Female
  Weight: 40 kg

DRUGS (3)
  1. ACETAMINOPHEN\ASPIRIN\CAFFEINE [Suspect]
     Active Substance: ACETAMINOPHEN\ASPIRIN\CAFFEINE
     Indication: Influenza
     Route: 048
     Dates: start: 20250301
  2. IBUPROFEN [Suspect]
     Active Substance: IBUPROFEN
     Indication: Influenza
     Route: 048
     Dates: start: 20250301, end: 20250302
  3. IBUPROFEN [Suspect]
     Active Substance: IBUPROFEN
     Indication: Fracture pain

REACTIONS (3)
  - Hallucination [Unknown]
  - Thinking abnormal [Unknown]
  - Alice in wonderland syndrome [Unknown]
